FAERS Safety Report 15883331 (Version 1)
Quarter: 2019Q1

REPORT INFORMATION
  Report Type: Spontaneous
  Country: DE (occurrence: DE)
  Receive Date: 20190129
  Receipt Date: 20190129
  Transmission Date: 20190417
  Serious: Yes (Hospitalization)
  Sender: FDA-Public Use
  Company Number: DE-ACCORD-103735

PATIENT
  Age: 86 Year
  Sex: Female

DRUGS (16)
  1. LEVOTHYROXINE. [Concomitant]
     Active Substance: LEVOTHYROXINE
     Dosage: 150 UG, 1-0-0-0
  2. METOPROLOL. [Concomitant]
     Active Substance: METOPROLOL
     Dosage: 142.5 MG, NK
  3. GLIMEPIRIDE. [Concomitant]
     Active Substance: GLIMEPIRIDE
     Dosage: 3 MG, 1-0-0-0
  4. NITRENDIPINE [Concomitant]
     Active Substance: NITRENDIPINE
     Dosage: 10 MG, 0-0-1-0
  5. TORASEMIDE [Concomitant]
     Active Substance: TORSEMIDE
     Dosage: 10 MG, 1-0-0-0
  6. PREGABALIN. [Suspect]
     Active Substance: PREGABALIN
     Indication: PRODUCT USED FOR UNKNOWN INDICATION
     Dosage: 25 MG, 1-1-0-1
  7. ALENDRONATE SODIUM/ALENDRONIC ACID [Concomitant]
     Dosage: 70 MG / WEEK, 1-0-0-0
  8. HYDROCHLOROTHIAZIDE/RAMIPRIL [Concomitant]
     Dosage: 5/25 MG, 1-0-0-0
  9. CALCIUM CARBONATE/COLECALCIFEROL [Concomitant]
     Dosage: 1-0-0-0
  10. ALLOPURINOL. [Concomitant]
     Active Substance: ALLOPURINOL
     Dosage: 300 MG, 0-1-0-0
  11. EZETIMIBE. [Concomitant]
     Active Substance: EZETIMIBE
     Dosage: 10 MG, 1-0-0-0
  12. PANTOPRAZOLE [Concomitant]
     Active Substance: PANTOPRAZOLE
     Dosage: 40 MG, 0-0-1-0
  13. PRAVASTATIN. [Concomitant]
     Active Substance: PRAVASTATIN
     Dosage: 40 MG, 0-0-1-0
  14. OXYCODONE/OXYCODONE HYDROCHLORIDE/OXYCODONE PECTINATE/OXYCODONE TEREPHTHALATE [Concomitant]
     Dosage: 20 MG, 1.5-0-1-0
  15. METAMIZOLE SODIUM [Concomitant]
     Active Substance: METAMIZOLE SODIUM
     Dosage: 500 MG, 1-1-1-1
  16. AMITRIPTYLINE [Suspect]
     Active Substance: AMITRIPTYLINE
     Indication: PRODUCT USED FOR UNKNOWN INDICATION
     Dosage: 25 MG, 0-0-0-1

REACTIONS (1)
  - Fall [Unknown]

NARRATIVE: CASE EVENT DATE: 20151007
